FAERS Safety Report 4569159-X (Version None)
Quarter: 2005Q1

REPORT INFORMATION
  Report Type: 
  Country: None (occurrence: None)
  Receive Date: 20050201
  Receipt Date: 20050113
  Transmission Date: 20050727
  Serious: Yes (Hospitalization)
  Sender: FDA-Public Use
  Company Number: DSA_70558_2005

PATIENT
  Age: 73 Year
  Sex: Male
  Weight: 97.7 kg

DRUGS (7)
  1. DARVOCET-N 100 [Suspect]
     Indication: HIP FRACTURE
     Dosage: 1 TAB Q6HR
     Dates: start: 20031201
  2. ZESTRIL [Concomitant]
     Indication: PAIN
  3. ASPIRIN [Concomitant]
  4. CATAPRES-TTS-1 [Concomitant]
  5. NEURONTIN [Concomitant]
  6. ZOCOR [Concomitant]
  7. QUININE [Concomitant]

REACTIONS (5)
  - AORTIC ANEURYSM [None]
  - ASTHENIA [None]
  - CONSTIPATION [None]
  - LABILE HYPERTENSION [None]
  - PAIN IN EXTREMITY [None]
